FAERS Safety Report 8455900-2 (Version None)
Quarter: 2012Q2

REPORT INFORMATION
  Report Type: 
  Country: None (occurrence: None)
  Receive Date: 20120621
  Receipt Date: 20120619
  Transmission Date: 20120825
  Serious: Yes (Other)
  Sender: FDA-Public Use
  Company Number: JP-PFIZER INC-2012139169

PATIENT
  Age: 75 Year
  Sex: Female

DRUGS (7)
  1. RABEPRAZOLE SODIUM [Concomitant]
     Dosage: UNK
  2. LASIX [Concomitant]
     Dosage: UNK
  3. DOXAZOSIN MESYLATE [Suspect]
     Dosage: UNK
     Route: 048
  4. PLETAL [Concomitant]
     Dosage: UNK
  5. ALDACTONE [Suspect]
     Dosage: UNK
     Route: 048
  6. MICARDIS [Concomitant]
     Dosage: UNK
  7. WARFARIN [Concomitant]
     Dosage: UNK

REACTIONS (1)
  - BLOOD CREATINE PHOSPHOKINASE INCREASED [None]
